FAERS Safety Report 8822074 (Version 1)
Quarter: 2012Q4

REPORT INFORMATION
  Report Type: 
  Country: GB (occurrence: GB)
  Receive Date: 20121003
  Receipt Date: 20121003
  Transmission Date: 20130627
  Serious: Yes (Other)
  Sender: FDA-Public Use
  Company Number: GB-AMGEN-GBRSP2012050433

PATIENT
  Age: 38 Year
  Sex: Male
  Weight: 99.5 kg

DRUGS (1)
  1. ENBREL [Suspect]
     Indication: PSORIASIS
     Dosage: 50 mg, weekly
     Route: 058
     Dates: start: 20120501

REACTIONS (3)
  - Asthma [Recovered/Resolved]
  - Wheezing [Recovered/Resolved]
  - Dyspnoea exertional [Recovered/Resolved]
